FAERS Safety Report 16469747 (Version 1)
Quarter: 2019Q3

REPORT INFORMATION
  Report Type: Spontaneous
  Country: US (occurrence: US)
  Receive Date: 20190623
  Receipt Date: 20190623
  Transmission Date: 20191004
  Serious: Yes (Disabling, Other)
  Sender: FDA-Public Use
  Company Number: None

PATIENT
  Age: 33 Year
  Sex: Female
  Weight: 78.75 kg

DRUGS (2)
  1. NUVARING [Suspect]
     Active Substance: ETHINYL ESTRADIOL\ETONOGESTREL
     Indication: CONTRACEPTION
     Dosage: ?          OTHER FREQUENCY:CHANGE EVERY.3 WEE;?
     Route: 067
     Dates: start: 20100610, end: 20190530
  2. TYLENOL [Concomitant]
     Active Substance: ACETAMINOPHEN

REACTIONS (7)
  - Loss of libido [None]
  - Cervical dysplasia [None]
  - Fatigue [None]
  - Depression [None]
  - Headache [None]
  - Cervicitis [None]
  - Cervix disorder [None]

NARRATIVE: CASE EVENT DATE: 20190509
